FAERS Safety Report 8942117 (Version 2)
Quarter: 2013Q3

REPORT INFORMATION
  Report Type: Spontaneous
  Country: US (occurrence: US)
  Receive Date: 20121203
  Receipt Date: 20130716
  Transmission Date: 20140515
  Serious: No
  Sender: FDA-Public Use
  Company Number: US-B.I. PHARMACEUTICALS,INC./RIDGEFIELD-2012-BI-01788BP

PATIENT
  Age: 79 Year
  Sex: Female

DRUGS (17)
  1. PRADAXA [Suspect]
     Indication: ATRIAL FIBRILLATION
     Dosage: 300 MG
     Route: 048
     Dates: start: 20120301
  2. SYNTHROID [Concomitant]
     Indication: HYPOTHYROIDISM
     Dosage: 0.025 MG
     Route: 048
     Dates: start: 1993
  3. SYNTHROID [Concomitant]
     Dosage: 0.25 MG
     Route: 048
     Dates: start: 2000
  4. HYZAAR [Concomitant]
     Indication: HYPERTENSION
     Dosage: 50 MG
     Route: 048
     Dates: start: 1998
  5. HYZAAR [Concomitant]
     Route: 048
     Dates: start: 2000
  6. LIPITOR [Concomitant]
     Indication: BLOOD CHOLESTEROL INCREASED
     Dosage: 20 MG
     Route: 048
     Dates: start: 1998
  7. LIPITOR [Concomitant]
     Dosage: 20 MG
     Route: 048
     Dates: start: 2000
  8. BABY ASPIRIN [Concomitant]
     Indication: CARDIAC DISORDER
     Dosage: 162 MG
     Route: 048
     Dates: start: 2000
  9. METOPROLOL [Concomitant]
     Indication: CARDIAC DISORDER
     Dosage: 100 MG
     Route: 048
     Dates: start: 201203
  10. METOPROLOL [Concomitant]
     Indication: HYPERTENSION
  11. STROVITE PLUS [Concomitant]
     Indication: SUPPLEMENTATION THERAPY
     Dosage: 1 ANZ
     Route: 048
     Dates: start: 1993
  12. STROVITE PLUS [Concomitant]
     Dosage: 1 RT
     Route: 048
     Dates: start: 2005
  13. CO-ENZYME Q10 [Concomitant]
     Indication: SUPPLEMENTATION THERAPY
     Dosage: 1 ANZ
     Route: 048
     Dates: start: 1993
  14. CO-ENZYME Q10 [Concomitant]
     Dosage: 50 MG
     Route: 048
     Dates: start: 2005
  15. B COMPLEX + C [Concomitant]
     Indication: SUPPLEMENTATION THERAPY
     Dosage: 1 TABLET DAILY
     Route: 048
     Dates: start: 1993
  16. OMEPRAZOLE [Concomitant]
     Indication: GASTROOESOPHAGEAL REFLUX DISEASE
     Route: 048
     Dates: start: 1998
  17. ASPIRIN [Concomitant]
     Dosage: 50 MG
     Route: 048
     Dates: start: 2003

REACTIONS (5)
  - Arthralgia [Unknown]
  - Dyspnoea [Not Recovered/Not Resolved]
  - Fatigue [Unknown]
  - Atrial fibrillation [Unknown]
  - Arthritis [Not Recovered/Not Resolved]
